FAERS Safety Report 24348937 (Version 1)
Quarter: 2024Q3

REPORT INFORMATION
  Report Type: Spontaneous
  Country: MY (occurrence: MY)
  Receive Date: 20240923
  Receipt Date: 20240923
  Transmission Date: 20241016
  Serious: Yes (Other)
  Sender: NOVARTIS
  Company Number: MY-002147023-NVSC2024MY182930

PATIENT
  Sex: Male

DRUGS (1)
  1. INCLISIRAN [Suspect]
     Active Substance: INCLISIRAN
     Indication: Blood cholesterol increased
     Dosage: UNK
     Route: 065
     Dates: start: 202312

REACTIONS (4)
  - Low density lipoprotein increased [Unknown]
  - High density lipoprotein increased [Unknown]
  - Blood cholesterol increased [Unknown]
  - Drug ineffective [Unknown]
